FAERS Safety Report 18985667 (Version 2)
Quarter: 2021Q2

REPORT INFORMATION
  Report Type: Report from Study
  Country: None (occurrence: CA)
  Receive Date: 20210309
  Receipt Date: 20210425
  Transmission Date: 20210717
  Serious: Yes (Other)
  Sender: FDA-Public Use
  Company Number: CA-ABBVIE-21K-028-3799095-00

PATIENT
  Sex: Male

DRUGS (3)
  1. HUMIRA [Suspect]
     Active Substance: ADALIMUMAB
     Indication: CROHN^S DISEASE
     Route: 058
     Dates: start: 20210113, end: 20210113
  2. HUMIRA [Suspect]
     Active Substance: ADALIMUMAB
     Route: 058
     Dates: start: 2021, end: 2021
  3. HUMIRA [Suspect]
     Active Substance: ADALIMUMAB
     Route: 058
     Dates: start: 2021

REACTIONS (6)
  - Gastrointestinal motility disorder [Not Recovered/Not Resolved]
  - Crohn^s disease [Recovering/Resolving]
  - Gastric disorder [Not Recovered/Not Resolved]
  - Intestinal obstruction [Not Recovered/Not Resolved]
  - Feeling abnormal [Unknown]
  - Abdominal rigidity [Not Recovered/Not Resolved]

NARRATIVE: CASE EVENT DATE: 2021
